FAERS Safety Report 21697011 (Version 1)
Quarter: 2022Q4

REPORT INFORMATION
  Report Type: Other
  Country: AU (occurrence: AU)
  Receive Date: 20221208
  Receipt Date: 20221208
  Transmission Date: 20230112
  Serious: Yes (Other)
  Sender: FDA-Public Use
  Company Number: AU-CELLTRION INC.-2022AU020248

PATIENT

DRUGS (7)
  1. INFLIXIMAB [Suspect]
     Active Substance: INFLIXIMAB
     Indication: Product used for unknown indication
  2. ADALIMUMAB [Suspect]
     Active Substance: ADALIMUMAB
     Indication: Product used for unknown indication
  3. CLOBETASOL [Concomitant]
     Active Substance: CLOBETASOL
  4. USTEKINUMAB [Concomitant]
     Active Substance: USTEKINUMAB
  5. FOLIC ACID [Concomitant]
     Active Substance: FOLIC ACID
  6. METHOTREXATE [Concomitant]
     Active Substance: METHOTREXATE
  7. PREDNISOLONE [Concomitant]
     Active Substance: PREDNISOLONE

REACTIONS (1)
  - Pemphigoid [Unknown]
